FAERS Safety Report 12876791 (Version 1)
Quarter: 2016Q4

REPORT INFORMATION
  Report Type: Report from Study
  Country: BG (occurrence: BG)
  Receive Date: 20161024
  Receipt Date: 20161024
  Transmission Date: 20170207
  Serious: Yes (Death, Hospitalization, Other)
  Sender: FDA-Public Use
  Company Number: BG-AMGEN-BGRSL2016112700

PATIENT
  Age: 60 Year
  Sex: Male
  Weight: 95 kg

DRUGS (1)
  1. VECTIBIX [Suspect]
     Active Substance: PANITUMUMAB
     Indication: COLON CANCER
     Dosage: 570 MG, Q2WK
     Route: 042
     Dates: start: 20160725, end: 20160908

REACTIONS (3)
  - Death [Fatal]
  - Enterostomy [Unknown]
  - Rash [Unknown]

NARRATIVE: CASE EVENT DATE: 2016
